FAERS Safety Report 14149178 (Version 2)
Quarter: 2017Q4

REPORT INFORMATION
  Report Type: Spontaneous
  Country: US (occurrence: US)
  Receive Date: 20171101
  Receipt Date: 20171214
  Transmission Date: 20180321
  Serious: Yes (Other)
  Sender: FDA-Public Use
  Company Number: US-NOVOPROD-568594

PATIENT
  Age: 72 Year
  Sex: Male
  Weight: 91 kg

DRUGS (2)
  1. LEVEMIR [Suspect]
     Active Substance: INSULIN DETEMIR
     Indication: TYPE 2 DIABETES MELLITUS
     Dosage: UNK
     Route: 058
     Dates: start: 2017
  2. NOVOLOG [Concomitant]
     Active Substance: INSULIN ASPART
     Indication: TYPE 2 DIABETES MELLITUS
     Dosage: UNK

REACTIONS (5)
  - Blood glucose decreased [Recovered/Resolved]
  - Device issue [Unknown]
  - Syncope [Recovered/Resolved]
  - Incorrect dose administered by device [Unknown]
  - Product quality issue [Unknown]

NARRATIVE: CASE EVENT DATE: 201710
